FAERS Safety Report 9033716 (Version 1)
Quarter: 2013Q1

REPORT INFORMATION
  Report Type: Spontaneous
  Country: CA (occurrence: CA)
  Receive Date: 20130128
  Receipt Date: 20130128
  Transmission Date: 20140127
  Serious: Yes (Hospitalization)
  Sender: FDA-Public Use
  Company Number: CA-AMGEN-CANSP2012077118

PATIENT
  Age: 78 Year
  Sex: Female
  Weight: 72.73 kg

DRUGS (2)
  1. PROLIA [Suspect]
     Indication: OSTEOPOROSIS
     Dosage: UNK
     Dates: start: 20120327
  2. ENBREL [Concomitant]
     Indication: PAIN MANAGEMENT
     Dosage: UNK

REACTIONS (6)
  - Dehydration [Unknown]
  - Blood sodium decreased [Unknown]
  - Confusional state [Unknown]
  - Fatigue [Unknown]
  - General physical health deterioration [Unknown]
  - Dizziness [Recovered/Resolved]
